FAERS Safety Report 23070071 (Version 1)
Quarter: 2023Q4

REPORT INFORMATION
  Report Type: Report from Study
  Country: US (occurrence: US)
  Receive Date: 20231016
  Receipt Date: 20231016
  Transmission Date: 20240110
  Serious: Yes (Other)
  Sender: FDA-Public Use
  Company Number: US-PHARMAAND-2023PHR00144

PATIENT
  Sex: Female

DRUGS (1)
  1. RUBRACA [Suspect]
     Active Substance: RUCAPARIB CAMSYLATE
     Indication: Ovarian cancer
     Dosage: 1200 MILLIGRAM EVERY 1 DAY(S) 600 MG, 2X/DAY
     Route: 048
     Dates: start: 20200210

REACTIONS (3)
  - Fall [Unknown]
  - Fracture [Unknown]
  - Ligament sprain [Unknown]
